FAERS Safety Report 10665939 (Version 1)
Quarter: 2014Q4

REPORT INFORMATION
  Report Type: Spontaneous
  Country: US (occurrence: US)
  Receive Date: 20141219
  Receipt Date: 20141219
  Transmission Date: 20150529
  Serious: Yes (Other)
  Sender: FDA-Public Use
  Company Number: US-ASTELLAS-2014US020349

PATIENT
  Age: 47 Year
  Sex: Male

DRUGS (2)
  1. ASTAGRAF XL [Suspect]
     Active Substance: TACROLIMUS
     Indication: PROPHYLAXIS AGAINST TRANSPLANT REJECTION
     Dosage: 3 MG, DAILY
     Route: 048
     Dates: start: 20140519
  2. ASTAGRAF XL [Suspect]
     Active Substance: TACROLIMUS
     Indication: RENAL TRANSPLANT

REACTIONS (2)
  - Skin neoplasm excision [Unknown]
  - Cholecystectomy [Unknown]

NARRATIVE: CASE EVENT DATE: 20140913
